FAERS Safety Report 11418463 (Version 2)
Quarter: 2019Q4

REPORT INFORMATION
  Report Type: Spontaneous
  Country: US (occurrence: US)
  Receive Date: 20150826
  Receipt Date: 20191212
  Transmission Date: 20200122
  Serious: No
  Sender: FDA-Public Use
  Company Number: US-NOVEN PHARMACEUTICALS, INC.-US2015000517

PATIENT

DRUGS (4)
  1. MINIVELLE [Suspect]
     Active Substance: ESTRADIOL
     Indication: HOT FLUSH
     Dosage: 0.0375 MG, UNKNOWN
     Route: 062
     Dates: start: 2013
  2. MINIVELLE [Suspect]
     Active Substance: ESTRADIOL
     Indication: NIGHT SWEATS
     Dosage: 0.025 MG, UNK
     Route: 062
     Dates: end: 2018
  3. PROGESTERONE. [Concomitant]
     Active Substance: PROGESTERONE
  4. MINIVELLE [Suspect]
     Active Substance: ESTRADIOL
     Dosage: 0.025 MG, UNK
     Route: 062
     Dates: start: 2018

REACTIONS (4)
  - Product administration error [Unknown]
  - Product storage error [Unknown]
  - Therapy cessation [Recovered/Resolved]
  - No adverse event [Unknown]

NARRATIVE: CASE EVENT DATE: 2018
